FAERS Safety Report 9018862 (Version 1)
Quarter: 2013Q1

REPORT INFORMATION
  Report Type: Report from Study
  Country: US (occurrence: US)
  Receive Date: 20130118
  Receipt Date: 20130118
  Transmission Date: 20140127
  Serious: Yes (Other)
  Sender: FDA-Public Use
  Company Number: US-BAYER-2013-000492

PATIENT
  Age: 81 Year
  Sex: Male
  Weight: 79.38 kg

DRUGS (11)
  1. XARELTO [Suspect]
     Indication: CEREBROVASCULAR ACCIDENT PROPHYLAXIS
     Dosage: 20 MG, QD
     Route: 048
     Dates: start: 20121220
  2. XARELTO [Interacting]
     Indication: ATRIAL FIBRILLATION
  3. ACETYLSALICYLIC ACID({=100 MG) [Interacting]
     Indication: ANTICOAGULANT THERAPY
     Dosage: 81 MG, BID
     Dates: start: 20121219
  4. LISINOPRIL [Concomitant]
     Dosage: 20 MG, QD
     Route: 048
  5. HCTZ [Concomitant]
  6. PRILOSEC [Concomitant]
     Indication: GASTRIC DISORDER
  7. PRILOSEC [Concomitant]
     Indication: GASTRIC DISORDER
  8. PACERONE [Concomitant]
     Indication: ARRHYTHMIA
  9. PACERONE [Concomitant]
     Indication: ARRHYTHMIA
  10. ^STOOL SOFTENER^ [Concomitant]
  11. DIGOXIN [Concomitant]
     Dosage: .125 MG, QD
     Route: 048

REACTIONS (2)
  - Epistaxis [Recovering/Resolving]
  - Wound haemorrhage [Recovered/Resolved]
